FAERS Safety Report 5551407-0 (Version None)
Quarter: 2007Q4

REPORT INFORMATION
  Report Type: 
  Country: None (occurrence: None)
  Receive Date: 20071212
  Receipt Date: 20071130
  Transmission Date: 20080405
  Serious: Yes (Hospitalization)
  Sender: FDA-Public Use
  Company Number: GB-ROCHE-533248

PATIENT
  Age: 61 Year
  Sex: Female
  Weight: 114 kg

DRUGS (7)
  1. ORLISTAT [Suspect]
     Indication: OBESITY
     Route: 048
     Dates: start: 20050331, end: 20060601
  2. ORLISTAT [Suspect]
     Route: 048
     Dates: end: 20070401
  3. AMITRIPTLINE HCL [Concomitant]
     Indication: DEPRESSION
     Dosage: TAKEN AT NIGHT
     Route: 048
     Dates: start: 20040427
  4. LANSOPRAZOLE [Concomitant]
     Indication: DYSPEPSIA
     Dosage: TAKEN IN EVENING
     Route: 048
     Dates: start: 20050517
  5. LEVOTHYROXINE SODIUM [Concomitant]
     Indication: HYPOTHYROIDISM
     Dosage: TAKEN IN EVENING
     Route: 048
     Dates: start: 20050517
  6. LISINOPRIL [Concomitant]
     Indication: HYPERTENSION
     Dosage: TAKEN IN EVENING
     Route: 048
     Dates: start: 20030517
  7. MELATONIN [Concomitant]
     Indication: INSOMNIA
     Dosage: TAKEN IN EVENING
     Route: 048
     Dates: start: 20060707

REACTIONS (1)
  - PSYCHOTIC DISORDER [None]
